FAERS Safety Report 15613345 (Version 1)
Quarter: 2018Q4

REPORT INFORMATION
  Report Type: Spontaneous
  Country: US (occurrence: US)
  Receive Date: 20181108
  Receipt Date: 20181108
  Transmission Date: 20190205
  Serious: No
  Sender: FDA-Public Use
  Company Number: None

PATIENT
  Age: 63 Year
  Sex: Female

DRUGS (1)
  1. IMATINIB 400MG TAB (X30) [Suspect]
     Active Substance: IMATINIB
     Route: 048
     Dates: start: 201712

REACTIONS (3)
  - Vomiting [None]
  - Nausea [None]
  - Gastrooesophageal reflux disease [None]

NARRATIVE: CASE EVENT DATE: 20181105
